FAERS Safety Report 16395673 (Version 1)
Quarter: 2019Q2

REPORT INFORMATION
  Report Type: Spontaneous
  Country: US (occurrence: US)
  Receive Date: 20190430
  Receipt Date: 20190430
  Transmission Date: 20190711
  Serious: Yes (Other)
  Sender: FDA-Public Use
  Company Number: None

PATIENT
  Age: 17 Year
  Sex: Male
  Weight: 57.6 kg

DRUGS (2)
  1. ESOMEPRAZOLE 20MG CAPEULES [Suspect]
     Active Substance: ESOMEPRAZOLE
     Indication: GASTROOESOPHAGEAL REFLUX DISEASE
     Dates: start: 20180820, end: 20181215
  2. ESOMEPRAZOLE 20MG CAPEULES [Suspect]
     Active Substance: ESOMEPRAZOLE
     Indication: CROHN^S DISEASE
     Dates: start: 20180820, end: 20181215

REACTIONS (1)
  - Abdominal pain [None]
